FAERS Safety Report 6016663-3 (Version None)
Quarter: 2008Q4

REPORT INFORMATION
  Report Type: 
  Country: None (occurrence: None)
  Receive Date: 20081222
  Receipt Date: 20081217
  Transmission Date: 20090506
  Serious: Yes (Death, Other)
  Sender: FDA-Public Use
  Company Number: PHHY2008JP32569

PATIENT
  Age: 76 Year
  Sex: Male

DRUGS (5)
  1. DIOVAN [Suspect]
     Indication: HYPERTENSION
     Dosage: 80 MG, QD
     Route: 048
     Dates: start: 20081205
  2. ASPIRIN [Concomitant]
     Dosage: 100 MG, UNK
     Route: 048
     Dates: start: 20081205
  3. HERBESSER ^DELTA^ [Concomitant]
     Dosage: 100 MG, UNK
     Route: 048
     Dates: start: 20081205
  4. BEPRICOR [Concomitant]
     Dosage: 200 MG, UNK
     Route: 048
     Dates: start: 20081205
  5. DICHLOTRIDE [Concomitant]
     Dosage: 12.5 MG, UNK
     Route: 048
     Dates: start: 20081205

REACTIONS (4)
  - ARRHYTHMIA [None]
  - BLOOD PRESSURE INCREASED [None]
  - BRAIN NATRIURETIC PEPTIDE INCREASED [None]
  - INTERNATIONAL NORMALISED RATIO INCREASED [None]
